FAERS Safety Report 14265091 (Version 1)
Quarter: 2017Q4

REPORT INFORMATION
  Report Type: Spontaneous
  Country: US (occurrence: US)
  Receive Date: 20171208
  Receipt Date: 20171208
  Transmission Date: 20180321
  Serious: Yes (Hospitalization, Other)
  Sender: FDA-Public Use
  Company Number: US-NOVOPROD-564018

PATIENT
  Age: 71 Year
  Sex: Male
  Weight: 158.73 kg

DRUGS (1)
  1. NOVOLIN 70/30 [Suspect]
     Active Substance: INSULIN HUMAN
     Indication: TYPE 2 DIABETES MELLITUS
     Dosage: SLIDING SCALE USUALLY BETWEEN 60-80 UNITS IN THE MORNING AND EVENING
     Route: 058
     Dates: start: 1992, end: 201707

REACTIONS (1)
  - Hypoglycaemic unconsciousness [Recovered/Resolved]
